FAERS Safety Report 8602580-9 (Version None)
Quarter: 2012Q3

REPORT INFORMATION
  Report Type: 
  Country: None (occurrence: None)
  Receive Date: 20120817
  Receipt Date: 20120816
  Transmission Date: 20120928
  Serious: Yes (Life-Threatening, Hospitalization, Other)
  Sender: FDA-Public Use
  Company Number: PHHY2012KR065964

PATIENT
  Sex: Female
  Weight: 51.8 kg

DRUGS (5)
  1. NORVASC [Concomitant]
     Indication: HYPERTENSION
     Dosage: UNK
     Dates: start: 20120319
  2. FOSAMAX [Concomitant]
     Indication: OSTEOPOROSIS
     Dates: start: 20120319
  3. IRBESARTAN [Concomitant]
     Dates: start: 20120521
  4. AFINITOR [Suspect]
     Indication: METASTATIC RENAL CELL CARCINOMA
     Dosage: 10 MG, DAILY
     Route: 048
     Dates: start: 20120308, end: 20120730
  5. INSULIN [Concomitant]
     Dates: start: 20120527

REACTIONS (5)
  - CONFUSIONAL STATE [None]
  - BLOOD CREATININE INCREASED [None]
  - AZOTAEMIA [None]
  - BLOOD CALCIUM INCREASED [None]
  - BLOOD UREA INCREASED [None]
